FAERS Safety Report 21125875 (Version 1)
Quarter: 2022Q3

REPORT INFORMATION
  Report Type: Spontaneous
  Country: US (occurrence: US)
  Receive Date: 20220725
  Receipt Date: 20220725
  Transmission Date: 20221027
  Serious: No
  Sender: FDA-Public Use
  Company Number: US-ABBVIE-22K-163-4411598-00

PATIENT
  Age: 22 Year
  Sex: Female

DRUGS (5)
  1. ORILISSA [Suspect]
     Active Substance: ELAGOLIX SODIUM
     Indication: Pelvic pain
     Route: 048
  2. ORILISSA [Suspect]
     Active Substance: ELAGOLIX SODIUM
     Indication: Abdominal pain
  3. ORILISSA [Suspect]
     Active Substance: ELAGOLIX SODIUM
     Indication: Endometriosis
  4. DEPO-PROVERA [Concomitant]
     Active Substance: MEDROXYPROGESTERONE ACETATE
     Indication: Pelvic pain
  5. DEPO-PROVERA [Concomitant]
     Active Substance: MEDROXYPROGESTERONE ACETATE
     Indication: Abdominal pain

REACTIONS (1)
  - Osteoporosis [Unknown]
